FAERS Safety Report 14499074 (Version 1)
Quarter: 2018Q1

REPORT INFORMATION
  Report Type: Spontaneous
  Country: ES (occurrence: ES)
  Receive Date: 20180207
  Receipt Date: 20180207
  Transmission Date: 20180509
  Serious: Yes (Death, Other)
  Sender: FDA-Public Use
  Company Number: ES-BAYER-2018-021103

PATIENT
  Age: 36 Year
  Sex: Female

DRUGS (2)
  1. SORAFENIB (RAF KINASE INHIBITOR) [Suspect]
     Active Substance: SORAFENIB
     Indication: PANCREATIC NEUROENDOCRINE TUMOUR
     Dosage: 400 MG, DAILY
  2. SORAFENIB (RAF KINASE INHIBITOR) [Suspect]
     Active Substance: SORAFENIB
     Indication: PANCREATIC NEUROENDOCRINE TUMOUR
     Dosage: 600 MG, DAILY

REACTIONS (4)
  - Pulmonary pneumatocele [Fatal]
  - Off label use [None]
  - Product use in unapproved indication [None]
  - Pancreatic neuroendocrine tumour [Fatal]
